FAERS Safety Report 5296703-X (Version None)
Quarter: 2007Q2

REPORT INFORMATION
  Report Type: 
  Country: None (occurrence: None)
  Receive Date: 20070413
  Receipt Date: 20070315
  Transmission Date: 20071010
  Serious: Yes (Other)
  Sender: FDA-Public Use
  Company Number: US-PFIZER INC-2007021143

PATIENT
  Sex: Female

DRUGS (1)
  1. BEXTRA [Suspect]
     Indication: PAIN

REACTIONS (3)
  - OCULAR HYPERAEMIA [None]
  - PHARYNGOLARYNGEAL PAIN [None]
  - RASH [None]
